FAERS Safety Report 5525464-1 (Version None)
Quarter: 2007Q4

REPORT INFORMATION
  Report Type: 
  Country: None (occurrence: None)
  Receive Date: 20071126
  Receipt Date: 20071115
  Transmission Date: 20080405
  Serious: Yes (Other)
  Sender: FDA-Public Use
  Company Number: NL-JNJFOC-20071106469

PATIENT
  Sex: Female
  Weight: 3.6 kg

DRUGS (2)
  1. DAKTARIN [Suspect]
     Dosage: DOSE APPLIED TO MOTHER'S NIPPLES
     Route: 048
  2. DAKTARIN [Suspect]
     Indication: ORAL CANDIDIASIS
     Route: 048

REACTIONS (2)
  - DRUG PRESCRIBING ERROR [None]
  - SOMNOLENCE [None]
